FAERS Safety Report 8240461-3 (Version None)
Quarter: 2012Q1

REPORT INFORMATION
  Report Type: 
  Country: None (occurrence: None)
  Receive Date: 20120328
  Receipt Date: 20120313
  Transmission Date: 20120608
  Serious: Yes (Hospitalization)
  Sender: FDA-Public Use
  Company Number: NL-MEDIMMUNE-MEDI-0015148

PATIENT
  Sex: Female
  Weight: 6.34 kg

DRUGS (2)
  1. SYNAGIS [Suspect]
     Route: 030
     Dates: start: 20120306, end: 20120306
  2. SYNAGIS [Suspect]
     Indication: BRONCHOPULMONARY DYSPLASIA
     Route: 030
     Dates: start: 20111115, end: 20120207

REACTIONS (3)
  - RESPIRATORY TRACT INFECTION VIRAL [None]
  - GASTROENTERITIS VIRAL [None]
  - PYREXIA [None]
